FAERS Safety Report 12824174 (Version 4)
Quarter: 2017Q2

REPORT INFORMATION
  Report Type: Spontaneous
  Country: IT (occurrence: IT)
  Receive Date: 20161007
  Receipt Date: 20170627
  Transmission Date: 20170830
  Serious: Yes (Other)
  Sender: FDA-Public Use
  Company Number: IT-CELGENEUS-ITA-2016096155

PATIENT
  Age: 59 Year
  Sex: Male
  Weight: 65 kg

DRUGS (3)
  1. GEMCITABINE [Suspect]
     Active Substance: GEMCITABINE\GEMCITABINE HYDROCHLORIDE
     Indication: PANCREATIC CARCINOMA STAGE IV
     Dosage: 1770 MG
     Route: 041
     Dates: start: 20160408, end: 20160805
  2. EUTIROX [Concomitant]
     Active Substance: LEVOTHYROXINE SODIUM
     Indication: HYPOTHYROIDISM
     Route: 048
  3. ABRAXANE [Suspect]
     Active Substance: PACLITAXEL
     Indication: PANCREATIC CARCINOMA STAGE IV
     Dosage: 220  MILLIGRAM
     Route: 041
     Dates: start: 20160408, end: 20160805

REACTIONS (5)
  - Gastrooesophageal reflux disease [Recovering/Resolving]
  - Hypertransaminasaemia [Recovering/Resolving]
  - Vomiting [Recovering/Resolving]
  - Paraesthesia [Not Recovered/Not Resolved]
  - Abdominal pain [Recovering/Resolving]

NARRATIVE: CASE EVENT DATE: 20160410
